FAERS Safety Report 5832523-2 (Version None)
Quarter: 2008Q3

REPORT INFORMATION
  Report Type: 
  Country: None (occurrence: None)
  Receive Date: 20080804
  Receipt Date: 20080729
  Transmission Date: 20090109
  Serious: Yes (Death)
  Sender: FDA-Public Use
  Company Number: JP-BRISTOL-MYERS SQUIBB COMPANY-14223325

PATIENT
  Age: 54 Year
  Sex: Male

DRUGS (5)
  1. BARACLUDE [Suspect]
     Indication: HEPATITIS B
     Route: 048
     Dates: start: 20080218, end: 20080301
  2. FUROSEMIDE [Concomitant]
     Route: 048
     Dates: start: 20080218, end: 20080301
  3. SPIRONOLACTONE [Concomitant]
     Route: 048
     Dates: start: 20080218, end: 20080301
  4. GASTER D [Concomitant]
     Route: 048
     Dates: start: 20080218, end: 20080301
  5. LIVACT [Concomitant]
     Route: 048
     Dates: start: 20080218, end: 20080301

REACTIONS (1)
  - HEPATIC FAILURE [None]
